FAERS Safety Report 12257905 (Version 2)
Quarter: 2016Q2

REPORT INFORMATION
  Report Type: Report from Study
  Country: US (occurrence: US)
  Receive Date: 20160412
  Receipt Date: 20160509
  Transmission Date: 20160815
  Serious: Yes (Hospitalization, Other)
  Sender: FDA-Public Use
  Company Number: US-ABBVIE-16K-163-1600750-00

PATIENT
  Sex: Female

DRUGS (1)
  1. HUMIRA [Suspect]
     Active Substance: ADALIMUMAB
     Indication: RHEUMATOID ARTHRITIS
     Route: 058
     Dates: start: 20160304, end: 20160401

REACTIONS (19)
  - Dehydration [Unknown]
  - Rhinorrhoea [Unknown]
  - Back pain [Unknown]
  - Loss of consciousness [Unknown]
  - Rheumatoid arthritis [Unknown]
  - Hypotension [Unknown]
  - Anaemia [Unknown]
  - Gait disturbance [Unknown]
  - Anxiety [Unknown]
  - Abdominal pain [Unknown]
  - Impaired self-care [Unknown]
  - Activities of daily living impaired [Unknown]
  - Fall [Unknown]
  - Nephrolithiasis [Unknown]
  - Nasopharyngitis [Unknown]
  - Joint swelling [Unknown]
  - Mobility decreased [Unknown]
  - Depressed mood [Unknown]
  - Family stress [Unknown]

NARRATIVE: CASE EVENT DATE: 2016
